FAERS Safety Report 20174550 (Version 1)
Quarter: 2021Q4

REPORT INFORMATION
  Report Type: Spontaneous
  Country: US (occurrence: US)
  Receive Date: 20211213
  Receipt Date: 20211213
  Transmission Date: 20220303
  Serious: Yes (Life-Threatening, Hospitalization)
  Sender: FDA-Public Use
  Company Number: US-JNJFOC-20211203612

PATIENT
  Age: 37 Year
  Sex: Male
  Weight: 66.3 kg

DRUGS (1)
  1. TYLENOL [Suspect]
     Active Substance: ACETAMINOPHEN
     Indication: Arthritis
     Dosage: UNKNOWN DOSE
     Route: 048

REACTIONS (8)
  - Overdose [Recovered/Resolved]
  - Acute hepatic failure [Recovered/Resolved]
  - Staphylococcal infection [Recovered/Resolved]
  - Enterococcal infection [Recovered/Resolved]
  - Beta haemolytic streptococcal infection [Recovered/Resolved]
  - Atrial fibrillation [Recovered/Resolved]
  - Acute kidney injury [Not Recovered/Not Resolved]
  - Chest X-ray abnormal [Not Recovered/Not Resolved]

NARRATIVE: CASE EVENT DATE: 20020308
